FAERS Safety Report 8943645 (Version 1)
Quarter: 2012Q4

REPORT INFORMATION
  Report Type: 
  Country: US (occurrence: US)
  Receive Date: 20121204
  Receipt Date: 20121204
  Transmission Date: 20130627
  Serious: Yes (Congenital Anomaly, Other)
  Sender: FDA-Public Use
  Company Number: US-PFIZER INC-2012300412

PATIENT
  Sex: Male
  Weight: 3 kg

DRUGS (13)
  1. ZOLOFT [Suspect]
     Indication: ANXIETY
     Dosage: 50 mg, 1x/day
     Route: 064
     Dates: end: 20101011
  2. ZOLOFT [Suspect]
     Indication: DEPRESSION
  3. SERTRALINE HCL [Suspect]
     Dosage: 50 mg, 1x/day
     Route: 064
     Dates: start: 20100914
  4. PRENATAL VITAMINS [Concomitant]
     Dosage: UNK
     Route: 064
     Dates: start: 20100908, end: 20110214
  5. ZOLPIDEM [Concomitant]
     Dosage: 10 mg, 1x/day at bed time
     Route: 064
     Dates: start: 20101008
  6. FLUOXETINE [Concomitant]
     Dosage: 20 mg, UNK
     Route: 064
     Dates: start: 20101011, end: 20110101
  7. PROZAC [Concomitant]
     Indication: DEPRESSION
     Dosage: 40mg daily, UNK
     Route: 064
     Dates: start: 20101012
  8. TRAZODONE [Concomitant]
     Dosage: 50 mg, UNK
     Route: 064
     Dates: start: 20101104, end: 20101227
  9. TRAZODONE [Concomitant]
     Dosage: 100 mg, UNK
     Route: 064
     Dates: start: 20101230, end: 20110210
  10. FERROUS SULPHATE [Concomitant]
     Dosage: UNK
     Route: 064
     Dates: start: 20101220, end: 20110210
  11. NIFEDIPINE [Concomitant]
     Dosage: 10 mg, 4x/day (every 6 hours)
     Route: 064
     Dates: start: 20101230, end: 20110208
  12. PROMETHAZINE [Concomitant]
     Dosage: 4x/day (every 6 hours), UNK
     Route: 064
     Dates: start: 20110116
  13. RANITIDINE [Concomitant]
     Dosage: 150 mg, 2x/day
     Route: 064
     Dates: start: 20110121, end: 20110217

REACTIONS (8)
  - Maternal exposure timing unspecified [Unknown]
  - Pulmonary artery stenosis congenital [Unknown]
  - Congenital aortic stenosis [Unknown]
  - Respiratory syncytial virus bronchiolitis [Unknown]
  - Jaundice neonatal [Unknown]
  - Diarrhoea neonatal [Not Recovered/Not Resolved]
  - Ventricular hypertrophy [Unknown]
  - Premature baby [Unknown]
